FAERS Safety Report 14394637 (Version 2)
Quarter: 2018Q1

REPORT INFORMATION
  Report Type: Spontaneous
  Country: US (occurrence: US)
  Receive Date: 20180116
  Receipt Date: 20180129
  Transmission Date: 20180509
  Serious: Yes (Hospitalization, Other)
  Sender: FDA-Public Use
  Company Number: US-PFIZER INC-2018013501

PATIENT
  Age: 50 Year
  Sex: Female
  Weight: 59 kg

DRUGS (1)
  1. ATROPINE SULFATE/DIPHENOXYLATE HYDROCHLORIDE [Suspect]
     Active Substance: ATROPINE SULFATE\DIPHENOXYLATE HYDROCHLORIDE
     Indication: DIARRHOEA
     Dosage: UNK

REACTIONS (7)
  - Blood potassium decreased [Recovered/Resolved with Sequelae]
  - Condition aggravated [Recovered/Resolved]
  - Therapy cessation [None]
  - Surgery [Not Recovered/Not Resolved]
  - Product use issue [Unknown]
  - Diarrhoea [Recovered/Resolved]
  - Blood magnesium decreased [Unknown]

NARRATIVE: CASE EVENT DATE: 2017
